FAERS Safety Report 24885616 (Version 3)
Quarter: 2025Q3

REPORT INFORMATION
  Report Type: Spontaneous
  Country: US (occurrence: US)
  Receive Date: 20250125
  Receipt Date: 20250829
  Transmission Date: 20251021
  Serious: Yes (Other)
  Sender: SANOFI AVENTIS
  Company Number: US-SA-2025SA021618

PATIENT
  Age: 55 Year
  Sex: Female
  Weight: 81.82 kg

DRUGS (2)
  1. DUPIXENT [Suspect]
     Active Substance: DUPILUMAB
     Indication: Asthma
     Dosage: 200 MG, QOW
     Route: 058
     Dates: end: 2025
  2. TALTZ [Concomitant]
     Active Substance: IXEKIZUMAB

REACTIONS (6)
  - Psoriatic arthropathy [Recovering/Resolving]
  - COVID-19 [Unknown]
  - Respiratory tract infection [Recovering/Resolving]
  - Peripheral swelling [Recovering/Resolving]
  - Asthma [Recovering/Resolving]
  - Drug ineffective [Unknown]

NARRATIVE: CASE EVENT DATE: 20250101
